FAERS Safety Report 7636887-9 (Version None)
Quarter: 2011Q3

REPORT INFORMATION
  Report Type: 
  Country: None (occurrence: None)
  Receive Date: 20110722
  Receipt Date: 20110722
  Transmission Date: 20111222
  Serious: No
  Sender: FDA-Public Use
  Company Number: None

PATIENT
  Age: 62 Year
  Sex: Female

DRUGS (1)
  1. VITAMIN D CAP [Suspect]
     Indication: VITAMIN D DECREASED
     Dosage: 50,000 UNITS 1X WEEK
     Dates: start: 20100427, end: 20100601

REACTIONS (7)
  - INSOMNIA [None]
  - OVERDOSE [None]
  - TOXICITY TO VARIOUS AGENTS [None]
  - MYALGIA [None]
  - THINKING ABNORMAL [None]
  - ACTIVITIES OF DAILY LIVING IMPAIRED [None]
  - ARTHRALGIA [None]
